FAERS Safety Report 4341641-X (Version None)
Quarter: 2004Q2

REPORT INFORMATION
  Report Type: 
  Country: None (occurrence: None)
  Receive Date: 20040415
  Receipt Date: 20040405
  Transmission Date: 20050107
  Serious: Yes (Death)
  Sender: FDA-Public Use
  Company Number: 040013

PATIENT
  Age: 52 Year
  Sex: Male

DRUGS (2)
  1. GOLYTELY [Suspect]
     Dosage: 4 LITERS NG
     Dates: start: 20031126
  2. OXYBUTYNIN [Concomitant]

REACTIONS (3)
  - ILEUS [None]
  - INTESTINAL OBSTRUCTION [None]
  - MEGACOLON ACQUIRED [None]
